FAERS Safety Report 4374666-9 (Version None)
Quarter: 2004Q2

REPORT INFORMATION
  Report Type: 
  Country: None (occurrence: None)
  Receive Date: 20040604
  Receipt Date: 20040522
  Transmission Date: 20050107
  Serious: Yes (Other)
  Sender: FDA-Public Use
  Company Number: 2004215287US

PATIENT
  Age: 31 Year
  Sex: Female
  Weight: 55.8 kg

DRUGS (1)
  1. DEPO-PROVERA [Suspect]
     Dosage: 150 MG, FIRST INJECT., INTRAMUSCULAR
     Route: 030
     Dates: start: 20030827, end: 20030827

REACTIONS (3)
  - AMENORRHOEA [None]
  - DEPRESSION [None]
  - SUICIDAL IDEATION [None]
